FAERS Safety Report 25544561 (Version 1)
Quarter: 2025Q3

REPORT INFORMATION
  Report Type: Spontaneous
  Country: EU (occurrence: EU)
  Receive Date: 20250711
  Receipt Date: 20250711
  Transmission Date: 20251021
  Serious: Yes (Hospitalization, Other)
  Sender: FRESENIUS KABI
  Company Number: EU-FreseniusKabi-FK202509194

PATIENT
  Age: 58 Year
  Sex: Female

DRUGS (1)
  1. LINEZOLID [Suspect]
     Active Substance: LINEZOLID
     Indication: Staphylococcal bacteraemia
     Dates: start: 20240801

REACTIONS (3)
  - Hyperlactacidaemia [Recovering/Resolving]
  - Respiratory alkalosis [Recovering/Resolving]
  - Lactic acidosis [Recovering/Resolving]
